FAERS Safety Report 24441827 (Version 3)
Quarter: 2024Q4

REPORT INFORMATION
  Report Type: Spontaneous
  Country: US (occurrence: US)
  Receive Date: 20241016
  Receipt Date: 20241223
  Transmission Date: 20250115
  Serious: No
  Sender: ROCHE
  Company Number: US-ROCHE-3508801

PATIENT
  Age: 9 Year
  Sex: Male
  Weight: 37.5 kg

DRUGS (4)
  1. HEMLIBRA [Suspect]
     Active Substance: EMICIZUMAB-KXWH
     Indication: Factor VIII deficiency
     Dosage: STRENGTH: 105 MG/0.7 ML
     Route: 058
     Dates: start: 202209
  2. HEMLIBRA [Suspect]
     Active Substance: EMICIZUMAB-KXWH
     Dosage: STRENGTH: 60 MG/0.4 ML
     Route: 058
     Dates: start: 202209
  3. AMINOCAPROIC ACID [Concomitant]
     Active Substance: AMINOCAPROIC ACID
     Route: 048
  4. ADVATE [Concomitant]
     Active Substance: ANTIHEMOPHILIC FACTOR, HUMAN RECOMBINANT

REACTIONS (1)
  - Haemorrhage [Recovered/Resolved]
